FAERS Safety Report 10872226 (Version 1)
Quarter: 2015Q1

REPORT INFORMATION
  Report Type: Spontaneous
  Country: US (occurrence: None)
  Receive Date: 20150223
  Receipt Date: 20150223
  Transmission Date: 20150721
  Serious: No
  Sender: FDA-Public Use
  Company Number: None

PATIENT
  Age: 26 Year
  Sex: Male
  Weight: 72.58 kg

DRUGS (3)
  1. ARMODAFINIL. [Suspect]
     Active Substance: ARMODAFINIL
     Indication: SLEEP APNOEA SYNDROME
     Dosage: 30 ONCE DAILY TAKEN BY MOUTH
     Route: 048
  2. VITAMIN D [Concomitant]
     Active Substance: CHOLECALCIFEROL
  3. ARMODAFINIL. [Suspect]
     Active Substance: ARMODAFINIL
     Indication: SOMNOLENCE
     Dosage: 30 ONCE DAILY TAKEN BY MOUTH
     Route: 048

REACTIONS (2)
  - Thinking abnormal [None]
  - Feeling abnormal [None]

NARRATIVE: CASE EVENT DATE: 20150221
